FAERS Safety Report 8494997-0 (Version None)
Quarter: 2012Q3

REPORT INFORMATION
  Report Type: 
  Country: None (occurrence: None)
  Receive Date: 20120709
  Receipt Date: 20120706
  Transmission Date: 20120928
  Serious: Yes (Hospitalization)
  Sender: FDA-Public Use
  Company Number: FR-JNJFOC-20120702340

PATIENT
  Sex: Female

DRUGS (12)
  1. FLUOXETINE [Suspect]
     Indication: DEPRESSION
     Route: 048
     Dates: start: 20050101
  2. ACETAMINOPHEN AND TRAMADOL HCL [Suspect]
     Indication: PAIN
     Route: 048
     Dates: start: 20090101
  3. CHLORAMINOPHENE [Suspect]
     Indication: B-CELL LYMPHOMA
     Route: 048
     Dates: start: 20111116, end: 20111219
  4. NORFLOXACIN [Suspect]
     Route: 048
     Dates: start: 20111116, end: 20111118
  5. ACETAMINOPHEN [Suspect]
     Indication: DENTAL CARE
     Route: 065
     Dates: start: 20111118, end: 20111120
  6. ACETAMINOPHEN [Suspect]
     Route: 048
  7. AMOXICILLIN [Suspect]
     Indication: DENTAL OPERATION
     Route: 065
     Dates: start: 20111118, end: 20111125
  8. NORFLOXACIN [Suspect]
     Indication: URINARY TRACT INFECTION
     Route: 048
     Dates: start: 20111130, end: 20111204
  9. ACETAMINOPHEN [Suspect]
     Route: 065
  10. ACETAMINOPHEN [Suspect]
     Indication: PRODUCT USED FOR UNKNOWN INDICATION
     Dosage: AS NEEDED
     Route: 048
     Dates: start: 20111125, end: 20111128
  11. MABTHERA [Suspect]
     Indication: B-CELL LYMPHOMA
     Route: 042
     Dates: start: 20111107, end: 20111128
  12. IBUPROFEN [Suspect]
     Indication: DENTAL CARE
     Dosage: 1 TO 3 TABLETS, 1/DAY
     Route: 048
     Dates: start: 20111128, end: 20111130

REACTIONS (2)
  - PRURITUS [None]
  - RASH ERYTHEMATOUS [None]
